FAERS Safety Report 11556172 (Version 1)
Quarter: 2015Q3

REPORT INFORMATION
  Report Type: Spontaneous
  Country: US (occurrence: US)
  Receive Date: 20150925
  Receipt Date: 20150925
  Transmission Date: 20151125
  Serious: Yes (Other)
  Sender: FDA-Public Use
  Company Number: US-PFIZER INC-2015309961

PATIENT
  Age: 62 Year
  Sex: Female

DRUGS (1)
  1. IBUPROFEN. [Suspect]
     Active Substance: IBUPROFEN
     Indication: RADICULAR PAIN
     Dosage: 800 MG, 4X/DAY

REACTIONS (2)
  - Overdose [Recovered/Resolved]
  - Hypertensive crisis [Recovered/Resolved]
